FAERS Safety Report 5042681-8 (Version None)
Quarter: 2006Q3

REPORT INFORMATION
  Report Type: 
  Country: None (occurrence: None)
  Receive Date: 20060705
  Receipt Date: 20060627
  Transmission Date: 20061208
  Serious: Yes (Other)
  Sender: FDA-Public Use
  Company Number: DE-JNJFOC-20060605879

PATIENT
  Sex: Female

DRUGS (1)
  1. IMODIUM AD [Suspect]
     Indication: DRUG USE FOR UNKNOWN INDICATION
     Route: 065

REACTIONS (3)
  - HEART RATE INCREASED [None]
  - HYPOTONIA [None]
  - RESPIRATORY DEPRESSION [None]
